FAERS Safety Report 13125384 (Version 1)
Quarter: 2017Q1

REPORT INFORMATION
  Report Type: Spontaneous
  Country: JP (occurrence: JP)
  Receive Date: 20170118
  Receipt Date: 20170118
  Transmission Date: 20170428
  Serious: Yes (Other)
  Sender: FDA-Public Use
  Company Number: JP-009507513-1701JPN007298

PATIENT
  Age: 75 Year
  Sex: Male
  Weight: 50 kg

DRUGS (1)
  1. ESLAX INTRAVENOUS 25MG/2.5ML [Suspect]
     Active Substance: ROCURONIUM BROMIDE
     Indication: SEDATION
     Dosage: 13 MCG/KG/MIN, CONTINUOUSLY FOR ABOUT 3 DAYS
     Route: 042
     Dates: start: 20170106, end: 20170108

REACTIONS (3)
  - Renal impairment [Unknown]
  - Off label use [Unknown]
  - Neuromuscular block prolonged [Not Recovered/Not Resolved]

NARRATIVE: CASE EVENT DATE: 201701
